FAERS Safety Report 24414997 (Version 16)
Quarter: 2025Q4

REPORT INFORMATION
  Report Type: Report from Study
  Country: CN (occurrence: CN)
  Receive Date: 20241009
  Receipt Date: 20251205
  Transmission Date: 20260117
  Serious: Yes (Life-Threatening, Hospitalization)
  Sender: SANOFI AVENTIS
  Company Number: CN-SA-2024SA273458

PATIENT
  Age: 64 Year
  Sex: Male
  Weight: 71.3 kg

DRUGS (250)
  1. ISATUXIMAB [Suspect]
     Active Substance: ISATUXIMAB
     Indication: Plasma cell myeloma refractory
     Dosage: 840 MG
     Route: 042
     Dates: start: 20230302, end: 20230302
  2. ISATUXIMAB [Suspect]
     Active Substance: ISATUXIMAB
     Dosage: 720 MG
     Route: 042
     Dates: start: 20240822, end: 20240822
  3. ISATUXIMAB [Suspect]
     Active Substance: ISATUXIMAB
     Dosage: 720 MG
     Route: 042
     Dates: start: 20240905, end: 20240905
  4. ISATUXIMAB [Suspect]
     Active Substance: ISATUXIMAB
     Dosage: 720 MG
     Route: 042
     Dates: start: 20240919, end: 20240919
  5. ISATUXIMAB [Suspect]
     Active Substance: ISATUXIMAB
     Dosage: 720 MG
     Route: 042
     Dates: start: 20250131, end: 20250131
  6. ISATUXIMAB [Suspect]
     Active Substance: ISATUXIMAB
     Dosage: 740 MG
     Route: 042
     Dates: start: 20241226, end: 20241226
  7. POMALIDOMIDE [Suspect]
     Active Substance: POMALIDOMIDE
     Indication: Plasma cell myeloma refractory
     Dosage: UNK
     Route: 048
     Dates: start: 20230302, end: 20230313
  8. POMALIDOMIDE [Suspect]
     Active Substance: POMALIDOMIDE
     Dosage: UNK
     Route: 048
     Dates: start: 20240808, end: 20240821
  9. DEXAMETHASONE [Suspect]
     Active Substance: DEXAMETHASONE
     Indication: Plasma cell myeloma refractory
     Dosage: UNK
     Route: 042
     Dates: start: 20230302
  10. DEXAMETHASONE [Suspect]
     Active Substance: DEXAMETHASONE
     Dosage: UNK
     Route: 042
     Dates: start: 20230309
  11. DEXAMETHASONE [Suspect]
     Active Substance: DEXAMETHASONE
     Dosage: UNK
     Route: 042
     Dates: start: 20230323
  12. DEXAMETHASONE [Suspect]
     Active Substance: DEXAMETHASONE
     Dosage: UNK
     Route: 048
     Dates: start: 20240815
  13. DEXAMETHASONE [Suspect]
     Active Substance: DEXAMETHASONE
     Dosage: UNK
     Route: 042
     Dates: start: 20240822
  14. DEXAMETHASONE [Suspect]
     Active Substance: DEXAMETHASONE
     Dosage: UNK
     Route: 048
     Dates: start: 20240829
  15. DEXAMETHASONE [Suspect]
     Active Substance: DEXAMETHASONE
     Dosage: UNK
     Route: 048
     Dates: start: 20240926
  16. DEXAMETHASONE [Suspect]
     Active Substance: DEXAMETHASONE
     Dosage: UNK
     Route: 042
     Dates: start: 20241003
  17. DEXAMETHASONE [Suspect]
     Active Substance: DEXAMETHASONE
     Dosage: UNK
     Route: 048
     Dates: start: 20241010
  18. DEXAMETHASONE [Suspect]
     Active Substance: DEXAMETHASONE
     Dosage: UNK
     Route: 042
     Dates: start: 20250131
  19. DEXAMETHASONE [Suspect]
     Active Substance: DEXAMETHASONE
     Dosage: UNK
     Route: 042
     Dates: start: 20240912
  20. DEXAMETHASONE [Suspect]
     Active Substance: DEXAMETHASONE
     Dosage: UNK
     Route: 048
     Dates: start: 20240926
  21. PANTOPRAZOLE SODIUM [Concomitant]
     Active Substance: PANTOPRAZOLE SODIUM
     Indication: Prophylaxis
     Dosage: UNK
     Route: 048
     Dates: start: 20240808, end: 20240808
  22. PANTOPRAZOLE SODIUM [Concomitant]
     Active Substance: PANTOPRAZOLE SODIUM
     Dosage: UNK
     Route: 048
     Dates: start: 20240822, end: 20240822
  23. PANTOPRAZOLE SODIUM [Concomitant]
     Active Substance: PANTOPRAZOLE SODIUM
     Dosage: UNK
     Route: 048
     Dates: start: 20240905, end: 20240905
  24. PANTOPRAZOLE SODIUM [Concomitant]
     Active Substance: PANTOPRAZOLE SODIUM
     Dosage: UNK, PRN
     Route: 048
     Dates: start: 20230330
  25. PANTOPRAZOLE SODIUM [Concomitant]
     Active Substance: PANTOPRAZOLE SODIUM
     Dosage: UNK
     Route: 048
     Dates: start: 20240919, end: 20240919
  26. PANTOPRAZOLE SODIUM [Concomitant]
     Active Substance: PANTOPRAZOLE SODIUM
     Dosage: UNK
     Route: 048
     Dates: start: 20241003, end: 20241003
  27. PANTOPRAZOLE SODIUM [Concomitant]
     Active Substance: PANTOPRAZOLE SODIUM
     Dosage: UNK
     Route: 048
     Dates: start: 20241128, end: 20241128
  28. PANTOPRAZOLE SODIUM [Concomitant]
     Active Substance: PANTOPRAZOLE SODIUM
     Dosage: UNK
     Route: 048
     Dates: start: 20241212, end: 20241212
  29. PANTOPRAZOLE SODIUM [Concomitant]
     Active Substance: PANTOPRAZOLE SODIUM
     Dosage: UNK
     Route: 048
     Dates: start: 20241226, end: 20241226
  30. PANTOPRAZOLE SODIUM [Concomitant]
     Active Substance: PANTOPRAZOLE SODIUM
     Dosage: UNK
     Route: 048
     Dates: start: 20250117, end: 20250117
  31. PANTOPRAZOLE SODIUM [Concomitant]
     Active Substance: PANTOPRAZOLE SODIUM
     Dosage: UNK
     Route: 048
     Dates: start: 20250131, end: 20250131
  32. INSULIN HUMAN [Concomitant]
     Active Substance: INSULIN HUMAN
     Dosage: UNK
     Route: 058
     Dates: start: 20230228
  33. INSULIN HUMAN [Concomitant]
     Active Substance: INSULIN HUMAN
     Dosage: UNK
     Route: 058
     Dates: start: 20241019
  34. METOPROLOL SUCCINATE [Concomitant]
     Active Substance: METOPROLOL SUCCINATE
     Dosage: UNK
     Route: 048
     Dates: start: 20240311
  35. AVATROMBOPAG [Concomitant]
     Active Substance: AVATROMBOPAG
     Dosage: UNK
     Route: 048
     Dates: start: 20240320
  36. AVATROMBOPAG [Concomitant]
     Active Substance: AVATROMBOPAG
     Dosage: UNK
     Route: 048
     Dates: start: 20241127, end: 20250108
  37. AVATROMBOPAG [Concomitant]
     Active Substance: AVATROMBOPAG
     Dosage: UNK
     Route: 048
     Dates: start: 20250109, end: 20250114
  38. AVATROMBOPAG [Concomitant]
     Active Substance: AVATROMBOPAG
     Dosage: UNK
     Route: 048
     Dates: start: 20250206
  39. METFORMIN HYDROCHLORIDE\SITAGLIPTIN PHOSPHATE [Concomitant]
     Active Substance: METFORMIN HYDROCHLORIDE\SITAGLIPTIN PHOSPHATE
     Dosage: UNK
     Route: 048
     Dates: start: 20240411
  40. CALCIUM CARBONATE\CHOLECALCIFEROL [Concomitant]
     Active Substance: CALCIUM CARBONATE\CHOLECALCIFEROL
     Dosage: UNK
     Route: 048
     Dates: start: 20240514, end: 20241002
  41. CALCIUM CARBONATE\CHOLECALCIFEROL [Concomitant]
     Active Substance: CALCIUM CARBONATE\CHOLECALCIFEROL
     Dosage: UNK
     Route: 048
     Dates: start: 20241003, end: 20241012
  42. CALCIUM CARBONATE\CHOLECALCIFEROL [Concomitant]
     Active Substance: CALCIUM CARBONATE\CHOLECALCIFEROL
     Dosage: UNK
     Route: 048
     Dates: start: 20241021, end: 20241109
  43. CALCIUM CARBONATE\CHOLECALCIFEROL [Concomitant]
     Active Substance: CALCIUM CARBONATE\CHOLECALCIFEROL
     Dosage: UNK
     Route: 048
     Dates: start: 20241206
  44. CALCIUM CARBONATE\CHOLECALCIFEROL [Concomitant]
     Active Substance: CALCIUM CARBONATE\CHOLECALCIFEROL
     Dosage: UNK
     Route: 048
     Dates: start: 20241127, end: 20241205
  45. VALGANCICLOVIR HYDROCHLORIDE [Concomitant]
     Active Substance: VALGANCICLOVIR HYDROCHLORIDE
     Dosage: UNK
     Route: 048
     Dates: start: 20240525, end: 20240912
  46. VALGANCICLOVIR HYDROCHLORIDE [Concomitant]
     Active Substance: VALGANCICLOVIR HYDROCHLORIDE
     Dosage: UNK
     Route: 048
     Dates: start: 20240913, end: 20241101
  47. LEUCOGEN [Concomitant]
     Active Substance: LEUCOGEN
     Dosage: UNK
     Route: 048
     Dates: start: 20240808, end: 20240922
  48. LEUCOGEN [Concomitant]
     Active Substance: LEUCOGEN
     Dosage: UNK
     Route: 048
     Dates: start: 20241003, end: 20241008
  49. LEUCOGEN [Concomitant]
     Active Substance: LEUCOGEN
     Dosage: UNK
     Route: 048
     Dates: start: 20241127, end: 20241212
  50. LEUCOGEN [Concomitant]
     Active Substance: LEUCOGEN
     Dosage: UNK
     Route: 048
     Dates: start: 20241113, end: 20241117
  51. LEUCOGEN [Concomitant]
     Active Substance: LEUCOGEN
     Dosage: UNK
     Route: 048
     Dates: start: 20250217
  52. CLOSTRIDIUM BUTYRICUM [Concomitant]
     Dosage: UNK
     Route: 048
     Dates: start: 20240527, end: 20240903
  53. MONTMORILLONITE [Concomitant]
     Active Substance: MONTMORILLONITE
     Dosage: UNK
     Route: 048
     Dates: start: 20240611
  54. MONTMORILLONITE [Concomitant]
     Active Substance: MONTMORILLONITE
     Dosage: UNK
     Route: 048
     Dates: start: 20241126, end: 20241126
  55. LOPERAMIDE HYDROCHLORIDE [Concomitant]
     Active Substance: LOPERAMIDE HYDROCHLORIDE
     Dosage: UNK UNK, PRN
     Route: 048
     Dates: start: 20240611
  56. LOPERAMIDE HYDROCHLORIDE [Concomitant]
     Active Substance: LOPERAMIDE HYDROCHLORIDE
     Dosage: UNK
     Route: 048
     Dates: start: 20241021, end: 20241021
  57. LOPERAMIDE HYDROCHLORIDE [Concomitant]
     Active Substance: LOPERAMIDE HYDROCHLORIDE
     Dosage: UNK
     Route: 048
     Dates: start: 20241126, end: 20241126
  58. HUMAN IMMUNOGLOBULIN G [Concomitant]
     Active Substance: HUMAN IMMUNOGLOBULIN G
     Indication: Prophylaxis
     Dosage: UNK
     Route: 041
     Dates: start: 20240807, end: 20240808
  59. HUMAN IMMUNOGLOBULIN G [Concomitant]
     Active Substance: HUMAN IMMUNOGLOBULIN G
     Dosage: UNK
     Route: 041
     Dates: start: 20240821
  60. HUMAN IMMUNOGLOBULIN G [Concomitant]
     Active Substance: HUMAN IMMUNOGLOBULIN G
     Dosage: UNK
     Route: 041
     Dates: start: 20241003, end: 20241004
  61. HUMAN IMMUNOGLOBULIN G [Concomitant]
     Active Substance: HUMAN IMMUNOGLOBULIN G
     Dosage: UNK
     Route: 041
     Dates: start: 20241126, end: 20241127
  62. HUMAN IMMUNOGLOBULIN G [Concomitant]
     Active Substance: HUMAN IMMUNOGLOBULIN G
     Dosage: UNK
     Route: 041
     Dates: start: 20241211, end: 20241211
  63. HUMAN IMMUNOGLOBULIN G [Concomitant]
     Active Substance: HUMAN IMMUNOGLOBULIN G
     Dosage: UNK
     Route: 041
     Dates: start: 20241212, end: 20241212
  64. HUMAN IMMUNOGLOBULIN G [Concomitant]
     Active Substance: HUMAN IMMUNOGLOBULIN G
     Dosage: UNK
     Route: 041
     Dates: start: 20241225, end: 20241225
  65. HUMAN IMMUNOGLOBULIN G [Concomitant]
     Active Substance: HUMAN IMMUNOGLOBULIN G
     Dosage: UNK
     Route: 041
     Dates: start: 20241226, end: 20241226
  66. HUMAN IMMUNOGLOBULIN G [Concomitant]
     Active Substance: HUMAN IMMUNOGLOBULIN G
     Dosage: UNK
     Route: 041
     Dates: start: 20250108, end: 20250110
  67. HUMAN IMMUNOGLOBULIN G [Concomitant]
     Active Substance: HUMAN IMMUNOGLOBULIN G
     Dosage: UNK
     Route: 041
     Dates: start: 20250130, end: 20250131
  68. HUMAN IMMUNOGLOBULIN G [Concomitant]
     Active Substance: HUMAN IMMUNOGLOBULIN G
     Dosage: UNK
     Route: 041
     Dates: start: 20250207, end: 20250207
  69. HUMAN IMMUNOGLOBULIN G [Concomitant]
     Active Substance: HUMAN IMMUNOGLOBULIN G
     Dosage: UNK
     Route: 041
     Dates: start: 20250208, end: 20250212
  70. HUMAN IMMUNOGLOBULIN G [Concomitant]
     Active Substance: HUMAN IMMUNOGLOBULIN G
     Dosage: UNK
     Route: 041
     Dates: start: 20250222, end: 20250222
  71. HUMAN IMMUNOGLOBULIN G [Concomitant]
     Active Substance: HUMAN IMMUNOGLOBULIN G
     Dosage: UNK
     Route: 041
     Dates: start: 20250223, end: 20250228
  72. POTASSIUM CHLORIDE [Concomitant]
     Active Substance: POTASSIUM CHLORIDE
     Dosage: UNK
     Route: 048
     Dates: start: 20240808, end: 20240815
  73. POTASSIUM CHLORIDE [Concomitant]
     Active Substance: POTASSIUM CHLORIDE
     Dosage: UNK
     Route: 048
     Dates: start: 20240821, end: 20240821
  74. POTASSIUM CHLORIDE [Concomitant]
     Active Substance: POTASSIUM CHLORIDE
     Dosage: UNK
     Route: 048
     Dates: start: 20240919, end: 20241004
  75. POTASSIUM CHLORIDE [Concomitant]
     Active Substance: POTASSIUM CHLORIDE
     Dosage: UNK
     Route: 048
     Dates: start: 20241014, end: 20241017
  76. POTASSIUM CHLORIDE [Concomitant]
     Active Substance: POTASSIUM CHLORIDE
     Dosage: UNK
     Route: 048
     Dates: start: 20241018, end: 20241020
  77. POTASSIUM CHLORIDE [Concomitant]
     Active Substance: POTASSIUM CHLORIDE
     Dosage: UNK
     Route: 048
     Dates: start: 20241021, end: 20241021
  78. POTASSIUM CHLORIDE [Concomitant]
     Active Substance: POTASSIUM CHLORIDE
     Dosage: UNK
     Route: 048
     Dates: start: 20241127, end: 20241204
  79. POTASSIUM CHLORIDE [Concomitant]
     Active Substance: POTASSIUM CHLORIDE
     Dosage: UNK
     Route: 048
     Dates: start: 20250118, end: 20250204
  80. POTASSIUM CHLORIDE [Concomitant]
     Active Substance: POTASSIUM CHLORIDE
     Dosage: UNK
     Route: 048
     Dates: start: 20241113, end: 20241118
  81. POTASSIUM CHLORIDE [Concomitant]
     Active Substance: POTASSIUM CHLORIDE
     Dosage: UNK
     Route: 048
     Dates: start: 20250117, end: 20250117
  82. POTASSIUM CHLORIDE [Concomitant]
     Active Substance: POTASSIUM CHLORIDE
     Dosage: UNK
     Route: 041
     Dates: start: 20250205, end: 20250207
  83. POTASSIUM CHLORIDE [Concomitant]
     Active Substance: POTASSIUM CHLORIDE
     Dosage: UNK
     Route: 041
     Dates: start: 20240808, end: 20240808
  84. POTASSIUM CHLORIDE [Concomitant]
     Active Substance: POTASSIUM CHLORIDE
     Dosage: UNK
     Route: 041
     Dates: start: 20240821, end: 20240821
  85. POTASSIUM CHLORIDE [Concomitant]
     Active Substance: POTASSIUM CHLORIDE
     Dosage: UNK
     Route: 041
     Dates: start: 20240822, end: 20240822
  86. POTASSIUM CHLORIDE [Concomitant]
     Active Substance: POTASSIUM CHLORIDE
     Dosage: UNK
     Route: 041
     Dates: start: 20240914, end: 20240915
  87. POTASSIUM CHLORIDE [Concomitant]
     Active Substance: POTASSIUM CHLORIDE
     Dosage: UNK
     Route: 041
     Dates: start: 20241127, end: 20241127
  88. POTASSIUM CHLORIDE [Concomitant]
     Active Substance: POTASSIUM CHLORIDE
     Dosage: UNK
     Route: 041
     Dates: start: 20241206, end: 20241206
  89. POTASSIUM CHLORIDE [Concomitant]
     Active Substance: POTASSIUM CHLORIDE
     Dosage: UNK
     Route: 041
     Dates: start: 20241212, end: 20241212
  90. POTASSIUM CHLORIDE [Concomitant]
     Active Substance: POTASSIUM CHLORIDE
     Dosage: UNK
     Route: 041
     Dates: start: 20241112, end: 20241118
  91. POTASSIUM CHLORIDE [Concomitant]
     Active Substance: POTASSIUM CHLORIDE
     Dosage: UNK
     Route: 041
     Dates: start: 20250131, end: 20250131
  92. POTASSIUM CHLORIDE [Concomitant]
     Active Substance: POTASSIUM CHLORIDE
     Dosage: UNK
     Route: 041
     Dates: start: 20250204, end: 20250204
  93. POTASSIUM CHLORIDE [Concomitant]
     Active Substance: POTASSIUM CHLORIDE
     Dosage: UNK
     Route: 041
     Dates: start: 20250206, end: 20250206
  94. POTASSIUM CHLORIDE [Concomitant]
     Active Substance: POTASSIUM CHLORIDE
     Dosage: UNK
     Route: 041
     Dates: start: 20250207, end: 20250207
  95. POTASSIUM CHLORIDE [Concomitant]
     Active Substance: POTASSIUM CHLORIDE
     Dosage: UNK
     Route: 041
     Dates: start: 20250208, end: 20250208
  96. POTASSIUM CHLORIDE [Concomitant]
     Active Substance: POTASSIUM CHLORIDE
     Dosage: UNK
     Route: 041
     Dates: start: 20250209, end: 20250209
  97. POTASSIUM CHLORIDE [Concomitant]
     Active Substance: POTASSIUM CHLORIDE
     Dosage: UNK
     Route: 048
     Dates: start: 20250210, end: 20250210
  98. POTASSIUM CHLORIDE [Concomitant]
     Active Substance: POTASSIUM CHLORIDE
     Dosage: UNK
     Route: 041
     Dates: start: 20250211, end: 20250301
  99. POTASSIUM CHLORIDE [Concomitant]
     Active Substance: POTASSIUM CHLORIDE
     Dosage: UNK
     Route: 041
     Dates: start: 20250224, end: 20250324
  100. POTASSIUM CHLORIDE [Concomitant]
     Active Substance: POTASSIUM CHLORIDE
     Dosage: UNK
     Route: 041
     Dates: start: 20250227, end: 20250227
  101. MAGNESIUM SULFATE [Concomitant]
     Active Substance: MAGNESIUM SULFATE
     Dosage: UNK
     Route: 041
     Dates: start: 20240808, end: 20240808
  102. MAGNESIUM SULFATE [Concomitant]
     Active Substance: MAGNESIUM SULFATE
     Dosage: UNK
     Route: 041
     Dates: start: 20240821, end: 20240821
  103. MAGNESIUM SULFATE [Concomitant]
     Active Substance: MAGNESIUM SULFATE
     Dosage: UNK
     Route: 041
     Dates: start: 20240914, end: 20240914
  104. MAGNESIUM SULFATE [Concomitant]
     Active Substance: MAGNESIUM SULFATE
     Dosage: UNK
     Route: 041
     Dates: start: 20241127, end: 20241127
  105. MAGNESIUM SULFATE [Concomitant]
     Active Substance: MAGNESIUM SULFATE
     Dosage: UNK
     Route: 041
     Dates: start: 20241206, end: 20241206
  106. MAGNESIUM SULFATE [Concomitant]
     Active Substance: MAGNESIUM SULFATE
     Dosage: UNK
     Route: 041
     Dates: start: 20241212, end: 20241212
  107. MAGNESIUM SULFATE [Concomitant]
     Active Substance: MAGNESIUM SULFATE
     Dosage: UNK
     Route: 041
     Dates: start: 20250131, end: 20250131
  108. MAGNESIUM SULFATE [Concomitant]
     Active Substance: MAGNESIUM SULFATE
     Dosage: UNK
     Route: 041
     Dates: start: 20250208, end: 20250208
  109. MAGNESIUM SULFATE [Concomitant]
     Active Substance: MAGNESIUM SULFATE
     Dosage: UNK
     Route: 041
     Dates: start: 20250224, end: 20250224
  110. MAGNESIUM SULFATE [Concomitant]
     Active Substance: MAGNESIUM SULFATE
     Dosage: UNK
     Route: 041
     Dates: start: 20250227, end: 20250227
  111. ZOLEDRONIC ACID [Concomitant]
     Active Substance: ZOLEDRONIC ACID
     Indication: Prophylaxis
     Dosage: UNK
     Route: 041
     Dates: start: 20240821, end: 20240821
  112. ZOLEDRONIC ACID [Concomitant]
     Active Substance: ZOLEDRONIC ACID
     Dosage: UNK
     Route: 041
     Dates: start: 20241127, end: 20241127
  113. ZOLEDRONIC ACID [Concomitant]
     Active Substance: ZOLEDRONIC ACID
     Dosage: UNK
     Route: 041
     Dates: start: 20241226, end: 20241226
  114. RECOMBINANT HUMAN THROMBOPOIETIN [Concomitant]
     Active Substance: RECOMBINANT HUMAN THROMBOPOIETIN
     Dosage: UNK
     Route: 058
     Dates: start: 20240822
  115. RECOMBINANT HUMAN THROMBOPOIETIN [Concomitant]
     Active Substance: RECOMBINANT HUMAN THROMBOPOIETIN
     Dosage: UNK
     Route: 058
     Dates: start: 20241012, end: 20241028
  116. RECOMBINANT HUMAN THROMBOPOIETIN [Concomitant]
     Active Substance: RECOMBINANT HUMAN THROMBOPOIETIN
     Dosage: UNK
     Route: 058
     Dates: start: 20241207, end: 20241207
  117. RECOMBINANT HUMAN THROMBOPOIETIN [Concomitant]
     Active Substance: RECOMBINANT HUMAN THROMBOPOIETIN
     Dosage: UNK
     Route: 058
     Dates: start: 20241212, end: 20241212
  118. RECOMBINANT HUMAN THROMBOPOIETIN [Concomitant]
     Active Substance: RECOMBINANT HUMAN THROMBOPOIETIN
     Dosage: UNK
     Route: 058
     Dates: start: 20241219, end: 20241219
  119. RECOMBINANT HUMAN THROMBOPOIETIN [Concomitant]
     Active Substance: RECOMBINANT HUMAN THROMBOPOIETIN
     Dosage: UNK
     Route: 058
     Dates: start: 20241220, end: 20241226
  120. RECOMBINANT HUMAN THROMBOPOIETIN [Concomitant]
     Active Substance: RECOMBINANT HUMAN THROMBOPOIETIN
     Dosage: UNK
     Route: 058
     Dates: start: 20250210, end: 20250210
  121. RECOMBINANT HUMAN THROMBOPOIETIN [Concomitant]
     Active Substance: RECOMBINANT HUMAN THROMBOPOIETIN
     Dosage: UNK
     Route: 058
     Dates: start: 20250211, end: 20250301
  122. RECOMBINANT HUMAN THROMBOPOIETIN [Concomitant]
     Active Substance: RECOMBINANT HUMAN THROMBOPOIETIN
     Dosage: UNK
     Route: 058
     Dates: start: 20250228, end: 20250228
  123. ESCULIN AND DIGITALISGLYCOSIDES [Concomitant]
     Dosage: UNK
     Route: 050
     Dates: start: 20240913
  124. ACETAMINOPHEN [Concomitant]
     Active Substance: ACETAMINOPHEN
     Dosage: UNK
     Route: 048
     Dates: start: 20240914, end: 20240915
  125. LEVOFLOXACIN [Concomitant]
     Active Substance: LEVOFLOXACIN
     Dosage: UNK
     Route: 042
     Dates: start: 20240914, end: 20240915
  126. LEVOFLOXACIN [Concomitant]
     Active Substance: LEVOFLOXACIN
     Dosage: UNK
     Route: 041
     Dates: start: 20241205, end: 20241205
  127. LEVOFLOXACIN [Concomitant]
     Active Substance: LEVOFLOXACIN
     Dosage: UNK
     Route: 041
     Dates: start: 20241206, end: 20241206
  128. LEVOFLOXACIN [Concomitant]
     Active Substance: LEVOFLOXACIN
     Dosage: UNK
     Route: 041
     Dates: start: 20250207, end: 20250214
  129. LEVOFLOXACIN [Concomitant]
     Active Substance: LEVOFLOXACIN
     Dosage: UNK
     Route: 041
     Dates: start: 20250220, end: 20250220
  130. LEVOFLOXACIN [Concomitant]
     Active Substance: LEVOFLOXACIN
     Dosage: UNK
     Route: 041
     Dates: start: 20250221, end: 20250225
  131. CALCITRIOL [Concomitant]
     Active Substance: CALCITRIOL
     Indication: Prophylaxis
     Dosage: UNK
     Route: 048
     Dates: start: 20240915, end: 20241004
  132. LIVE COMBINED BIFIDOBACTERIUM, LACTOBACILLUS AND ENTEROCOCCUS [Concomitant]
     Dosage: UNK(6 OTHER)
     Route: 048
     Dates: start: 20240918, end: 20240923
  133. LIVE COMBINED BIFIDOBACTERIUM, LACTOBACILLUS AND ENTEROCOCCUS [Concomitant]
     Dosage: UNK(6 OTHER)
     Route: 048
     Dates: start: 20241003, end: 20241008
  134. DEFERASIROX [Concomitant]
     Active Substance: DEFERASIROX
     Dosage: UNK
     Route: 048
     Dates: start: 20240919, end: 20241103
  135. DEFERASIROX [Concomitant]
     Active Substance: DEFERASIROX
     Dosage: UNK
     Route: 048
     Dates: start: 20241127, end: 20241220
  136. LECITHIN [Concomitant]
     Active Substance: LECITHIN
     Dosage: UNK
     Route: 048
     Dates: start: 20241003, end: 20241014
  137. LECITHIN [Concomitant]
     Active Substance: LECITHIN
     Dosage: UNK
     Route: 048
     Dates: start: 20250220
  138. MOXIFLOXACIN HYDROCHLORIDE [Concomitant]
     Active Substance: MOXIFLOXACIN HYDROCHLORIDE
     Dosage: UNK
     Route: 048
     Dates: start: 20241002, end: 20241011
  139. MOXIFLOXACIN HYDROCHLORIDE [Concomitant]
     Active Substance: MOXIFLOXACIN HYDROCHLORIDE
     Dosage: UNK
     Route: 048
     Dates: start: 20241012, end: 20241021
  140. MOXIFLOXACIN HYDROCHLORIDE [Concomitant]
     Active Substance: MOXIFLOXACIN HYDROCHLORIDE
     Dosage: UNK
     Route: 048
     Dates: start: 20241113, end: 20241118
  141. MOXIFLOXACIN HYDROCHLORIDE [Concomitant]
     Active Substance: MOXIFLOXACIN HYDROCHLORIDE
     Dosage: UNK
     Route: 048
     Dates: start: 20250108, end: 20250108
  142. MOXIFLOXACIN HYDROCHLORIDE [Concomitant]
     Active Substance: MOXIFLOXACIN HYDROCHLORIDE
     Dosage: UNK
     Route: 048
     Dates: start: 20250109
  143. MOXIFLOXACIN HYDROCHLORIDE [Concomitant]
     Active Substance: MOXIFLOXACIN HYDROCHLORIDE
     Dosage: UNK
     Route: 048
     Dates: start: 20250225, end: 20250225
  144. MOXIFLOXACIN HYDROCHLORIDE [Concomitant]
     Active Substance: MOXIFLOXACIN HYDROCHLORIDE
     Dosage: UNK
     Route: 048
     Dates: start: 20250226
  145. COMPOUND GLYCYRRHIZA [FOENICULUM VULGARE;GLYCYRRHIZA SPP.;SENNA SPP. L [Concomitant]
     Dosage: UNK
     Route: 048
     Dates: start: 20241002, end: 20241025
  146. COMPOUND GLYCYRRHIZA [FOENICULUM VULGARE;GLYCYRRHIZA SPP.;SENNA SPP. L [Concomitant]
     Dosage: UNK
     Route: 048
     Dates: start: 20250109
  147. ETHAMSYLATE [Concomitant]
     Active Substance: ETHAMSYLATE
     Indication: Prophylaxis
     Dosage: UNK
     Route: 041
     Dates: start: 20241012, end: 20241012
  148. ETHAMSYLATE [Concomitant]
     Active Substance: ETHAMSYLATE
     Dosage: UNK
     Route: 041
     Dates: start: 20241013, end: 20241029
  149. ETHAMSYLATE [Concomitant]
     Active Substance: ETHAMSYLATE
     Dosage: UNK
     Route: 041
     Dates: start: 20241220, end: 20241226
  150. ETHAMSYLATE [Concomitant]
     Active Substance: ETHAMSYLATE
     Dosage: UNK
     Route: 040
     Dates: start: 20250226, end: 20250226
  151. ETHAMSYLATE [Concomitant]
     Active Substance: ETHAMSYLATE
     Dosage: UNK
     Route: 040
     Dates: start: 20250227, end: 20250301
  152. ETHAMSYLATE [Concomitant]
     Active Substance: ETHAMSYLATE
     Dosage: UNK
     Route: 040
     Dates: start: 20250228, end: 20250228
  153. PIPERACILLIN AND TAZOBACTAM [Concomitant]
     Active Substance: PIPERACILLIN SODIUM\TAZOBACTAM SODIUM
     Dosage: UNK
     Route: 041
     Dates: start: 20241012, end: 20241012
  154. FOSCARNET SODIUM [Concomitant]
     Active Substance: FOSCARNET SODIUM
     Dosage: UNK
     Route: 041
     Dates: start: 20241012, end: 20241029
  155. MAGNESIUM ISOGLYCYRRHIZINATE [Concomitant]
     Active Substance: MAGNESIUM ISOGLYCYRRHIZINATE
     Dosage: UNK
     Route: 041
     Dates: start: 20241012, end: 20241014
  156. SPIRONOLACTONE [Concomitant]
     Active Substance: SPIRONOLACTONE
     Dosage: UNK
     Route: 048
     Dates: start: 20241013, end: 20241013
  157. LEVOFLOXACIN [Concomitant]
     Active Substance: LEVOFLOXACIN
     Dosage: UNK
     Route: 041
     Dates: start: 20241013, end: 20241013
  158. LORATADINE [Concomitant]
     Active Substance: LORATADINE
     Indication: Prophylaxis
     Dosage: UNK
     Route: 048
     Dates: start: 20241013, end: 20241017
  159. PLATELETS [Concomitant]
     Active Substance: HUMAN PLATELET, ALLOGENIC
     Dosage: UNK
     Route: 041
     Dates: start: 20241013, end: 20241013
  160. PLATELETS [Concomitant]
     Active Substance: HUMAN PLATELET, ALLOGENIC
     Dosage: UNK
     Route: 041
     Dates: start: 20241017, end: 20241017
  161. PLATELETS [Concomitant]
     Active Substance: HUMAN PLATELET, ALLOGENIC
     Dosage: UNK
     Route: 041
     Dates: start: 20241021, end: 20241021
  162. PLATELETS [Concomitant]
     Active Substance: HUMAN PLATELET, ALLOGENIC
     Dosage: UNK
     Route: 041
     Dates: start: 20241210, end: 20241210
  163. PLATELETS [Concomitant]
     Active Substance: HUMAN PLATELET, ALLOGENIC
     Dosage: UNK
     Route: 041
     Dates: start: 20241221, end: 20241221
  164. PLATELETS [Concomitant]
     Active Substance: HUMAN PLATELET, ALLOGENIC
     Dosage: UNK
     Route: 041
     Dates: start: 20241225, end: 20241225
  165. PLATELETS [Concomitant]
     Active Substance: HUMAN PLATELET, ALLOGENIC
     Dosage: UNK
     Route: 041
     Dates: start: 20250208, end: 20250208
  166. PLATELETS [Concomitant]
     Active Substance: HUMAN PLATELET, ALLOGENIC
     Dosage: UNK
     Route: 041
     Dates: start: 20250214, end: 20250214
  167. PLATELETS [Concomitant]
     Active Substance: HUMAN PLATELET, ALLOGENIC
     Dosage: UNK
     Route: 041
     Dates: start: 20250218, end: 20250218
  168. PLATELETS [Concomitant]
     Active Substance: HUMAN PLATELET, ALLOGENIC
     Dosage: UNK
     Route: 041
     Dates: start: 20250221, end: 20250221
  169. PLATELETS [Concomitant]
     Active Substance: HUMAN PLATELET, ALLOGENIC
     Dosage: UNK
     Route: 041
     Dates: start: 20250225, end: 20250225
  170. PLATELETS [Concomitant]
     Active Substance: HUMAN PLATELET, ALLOGENIC
     Dosage: UNK
     Route: 041
     Dates: start: 20250228, end: 20250228
  171. DEXTROSE [Concomitant]
     Active Substance: DEXTROSE MONOHYDRATE
     Dosage: UNK
     Route: 041
     Dates: start: 20241014, end: 20241014
  172. DEXTROSE [Concomitant]
     Active Substance: DEXTROSE MONOHYDRATE
     Dosage: UNK
     Route: 041
     Dates: start: 20241014, end: 20241014
  173. DEXTROSE [Concomitant]
     Active Substance: DEXTROSE MONOHYDRATE
     Dosage: UNK
     Route: 041
     Dates: start: 20250212, end: 20250212
  174. DEXTROSE [Concomitant]
     Active Substance: DEXTROSE MONOHYDRATE
     Dosage: UNK
     Route: 041
     Dates: start: 20250222, end: 20250222
  175. LOXOPROFEN SODIUM [Concomitant]
     Active Substance: LOXOPROFEN SODIUM
     Dosage: UNK
     Route: 048
     Dates: start: 20241014, end: 20241102
  176. OFLOXACIN [Concomitant]
     Active Substance: OFLOXACIN
     Dosage: UNK(1 OHER)
     Dates: start: 20241015
  177. GANCICLOVIR [Concomitant]
     Active Substance: GANCICLOVIR
     Dosage: UNK
     Route: 041
     Dates: start: 20241015, end: 20241015
  178. GANCICLOVIR [Concomitant]
     Active Substance: GANCICLOVIR
     Dosage: UNK
     Route: 041
     Dates: start: 20241018, end: 20241018
  179. HUMAN RED BLOOD CELL [Concomitant]
     Active Substance: HUMAN RED BLOOD CELL
     Dosage: UNK
     Route: 041
     Dates: start: 20241015, end: 20241015
  180. HUMAN RED BLOOD CELL [Concomitant]
     Active Substance: HUMAN RED BLOOD CELL
     Dosage: UNK
     Route: 041
     Dates: start: 20241016, end: 20241016
  181. HUMAN RED BLOOD CELL [Concomitant]
     Active Substance: HUMAN RED BLOOD CELL
     Dosage: UNK
     Route: 058
     Dates: start: 20241211, end: 20241211
  182. HUMAN RED BLOOD CELL [Concomitant]
     Active Substance: HUMAN RED BLOOD CELL
     Dosage: UNK
     Route: 041
     Dates: start: 20241222, end: 20241222
  183. HUMAN RED BLOOD CELL [Concomitant]
     Active Substance: HUMAN RED BLOOD CELL
     Dosage: UNK
     Route: 041
     Dates: start: 20241225, end: 20241225
  184. HUMAN RED BLOOD CELL [Concomitant]
     Active Substance: HUMAN RED BLOOD CELL
     Dosage: UNK
     Route: 041
     Dates: start: 20250113, end: 20250113
  185. HUMAN RED BLOOD CELL [Concomitant]
     Active Substance: HUMAN RED BLOOD CELL
     Dosage: UNK
     Route: 041
     Dates: start: 20250219, end: 20250219
  186. HUMAN RED BLOOD CELL [Concomitant]
     Active Substance: HUMAN RED BLOOD CELL
     Dosage: UNK
     Route: 041
     Dates: start: 20250224, end: 20250224
  187. LEVOFLOXACIN HYDROCHLORIDE [Concomitant]
     Active Substance: LEVOFLOXACIN HYDROCHLORIDE
     Dosage: UNK(1 OTHER)
     Dates: start: 20241016, end: 20241016
  188. LEVOFLOXACIN HYDROCHLORIDE [Concomitant]
     Active Substance: LEVOFLOXACIN HYDROCHLORIDE
     Dosage: UNK
     Route: 041
     Dates: start: 20250206, end: 20250206
  189. TOBRAMYCIN AND DEXAMETHASONE [Concomitant]
     Active Substance: DEXAMETHASONE\TOBRAMYCIN
     Dosage: UNK
     Dates: start: 20241018, end: 20241018
  190. LIDOCAINE HYDROCHLORIDE [Concomitant]
     Active Substance: LIDOCAINE HYDROCHLORIDE
     Indication: Prophylaxis
     Dosage: UNK
     Route: 058
     Dates: start: 20241021, end: 20241021
  191. ERTAPENEM [Concomitant]
     Active Substance: ERTAPENEM
     Dosage: UNK
     Route: 041
     Dates: start: 20241021, end: 20241029
  192. LETERMOVIR [Concomitant]
     Active Substance: LETERMOVIR
     Indication: Prophylaxis
     Dosage: UNK
     Route: 048
     Dates: start: 20241119
  193. LETERMOVIR [Concomitant]
     Active Substance: LETERMOVIR
     Dosage: UNK
     Route: 048
     Dates: start: 20241115, end: 20241118
  194. FLUCONAZOLE [Concomitant]
     Active Substance: FLUCONAZOLE
     Dosage: UNK
     Route: 048
     Dates: start: 20241022, end: 20241029
  195. FLUCONAZOLE [Concomitant]
     Active Substance: FLUCONAZOLE
     Dosage: UNK
     Route: 048
     Dates: start: 20241113, end: 20241118
  196. RAFUTROMBOPAG OLAMINE [Concomitant]
     Active Substance: RAFUTROMBOPAG OLAMINE
     Dosage: UNK
     Route: 048
     Dates: start: 20241119, end: 20241126
  197. LIVE COMBINED BIFIDOBACTERIUM, LACTOBACILLUS AND ENTEROCOCCUS [Concomitant]
     Dosage: UNK(6)
     Route: 048
     Dates: start: 20241126, end: 20241126
  198. LIVE COMBINED BIFIDOBACTERIUM, LACTOBACILLUS AND ENTEROCOCCUS [Concomitant]
     Dosage: UNK(6)
     Route: 048
     Dates: start: 20241210, end: 20250108
  199. TELPEGFILGRASTIM [Concomitant]
     Dosage: UNK
     Route: 058
     Dates: start: 20241127, end: 20241127
  200. TELPEGFILGRASTIM [Concomitant]
     Dosage: UNK
     Route: 058
     Dates: start: 20241212, end: 20241212
  201. TELPEGFILGRASTIM [Concomitant]
     Dosage: UNK
     Route: 058
     Dates: start: 20250204, end: 20250204
  202. INSULIN HUMAN [Concomitant]
     Active Substance: INSULIN HUMAN
     Dosage: UNK
     Route: 041
     Dates: start: 20241112, end: 20241118
  203. VITAMIN C [Concomitant]
     Active Substance: ASCORBIC ACID
     Dosage: UNK
     Route: 041
     Dates: start: 20241112, end: 20241118
  204. MEROPENEM [Concomitant]
     Active Substance: MEROPENEM
     Dosage: UNK
     Route: 041
     Dates: start: 20241112, end: 20241118
  205. MEROPENEM [Concomitant]
     Active Substance: MEROPENEM
     Dosage: UNK
     Route: 041
     Dates: start: 20250213, end: 20250213
  206. MEROPENEM [Concomitant]
     Active Substance: MEROPENEM
     Dosage: UNK
     Route: 041
     Dates: start: 20250214, end: 20250228
  207. VANCOMYCIN HYDROCHLORIDE [Concomitant]
     Active Substance: VANCOMYCIN HYDROCHLORIDE
     Dosage: UNK
     Route: 041
     Dates: start: 20241112, end: 20241118
  208. VANCOMYCIN HYDROCHLORIDE [Concomitant]
     Active Substance: VANCOMYCIN HYDROCHLORIDE
     Dosage: UNK
     Route: 041
     Dates: start: 20250214, end: 20250214
  209. VANCOMYCIN HYDROCHLORIDE [Concomitant]
     Active Substance: VANCOMYCIN HYDROCHLORIDE
     Dosage: UNK
     Route: 041
     Dates: start: 20250215, end: 20250224
  210. BACILLUS LICHENIFORMIS GRANULES, LIVE [Concomitant]
     Dosage: UNK
     Route: 048
     Dates: start: 20241113, end: 20241118
  211. BACILLUS LICHENIFORMIS GRANULES, LIVE [Concomitant]
     Dosage: UNK
     Route: 048
     Dates: start: 20250212, end: 20250219
  212. BACILLUS LICHENIFORMIS GRANULES, LIVE [Concomitant]
     Dosage: UNK
     Route: 048
     Dates: start: 20250221, end: 20250221
  213. BACILLUS LICHENIFORMIS GRANULES, LIVE [Concomitant]
     Dosage: UNK
     Route: 048
     Dates: start: 20250222, end: 20250301
  214. RABEPRAZOLE SODIUM [Concomitant]
     Active Substance: RABEPRAZOLE SODIUM
     Indication: Prophylaxis
     Dosage: UNK
     Route: 041
     Dates: start: 20241113, end: 20241118
  215. IBUPROFEN [Concomitant]
     Active Substance: IBUPROFEN
     Dosage: UNK
     Route: 048
     Dates: start: 20250205, end: 20250205
  216. IBUPROFEN [Concomitant]
     Active Substance: IBUPROFEN
     Dosage: UNK
     Route: 048
     Dates: start: 20250206, end: 20250206
  217. IBUPROFEN [Concomitant]
     Active Substance: IBUPROFEN
     Dosage: UNK
     Route: 048
     Dates: start: 20250207, end: 20250207
  218. IBUPROFEN [Concomitant]
     Active Substance: IBUPROFEN
     Dosage: UNK
     Route: 048
     Dates: start: 20250210, end: 20250210
  219. IBUPROFEN [Concomitant]
     Active Substance: IBUPROFEN
     Dosage: UNK
     Route: 048
     Dates: start: 20250213, end: 20250213
  220. IBUPROFEN [Concomitant]
     Active Substance: IBUPROFEN
     Dosage: UNK
     Route: 048
     Dates: start: 20250214, end: 20250214
  221. IBUPROFEN [Concomitant]
     Active Substance: IBUPROFEN
     Dosage: UNK
     Route: 048
     Dates: start: 20250215, end: 20250215
  222. IBUPROFEN [Concomitant]
     Active Substance: IBUPROFEN
     Dosage: UNK
     Route: 048
     Dates: start: 20250218, end: 20250218
  223. IBUPROFEN [Concomitant]
     Active Substance: IBUPROFEN
     Dosage: UNK
     Route: 048
     Dates: start: 20250219, end: 20250219
  224. IBUPROFEN [Concomitant]
     Active Substance: IBUPROFEN
     Dosage: UNK
     Route: 048
     Dates: start: 20250220, end: 20250220
  225. IBUPROFEN [Concomitant]
     Active Substance: IBUPROFEN
     Dosage: UNK
     Route: 048
     Dates: start: 20250224, end: 20250228
  226. IBUPROFEN [Concomitant]
     Active Substance: IBUPROFEN
     Dosage: UNK
     Route: 048
     Dates: start: 20250225, end: 20250225
  227. IBUPROFEN [Concomitant]
     Active Substance: IBUPROFEN
     Dosage: UNK
     Route: 048
     Dates: start: 20250228, end: 20250228
  228. AMINO ACIDS, SOURCE UNSPECIFIED [Concomitant]
     Active Substance: AMINO ACIDS, SOURCE UNSPECIFIED
     Dosage: UNK
     Route: 041
     Dates: start: 20250208, end: 20250208
  229. AMINO ACIDS, SOURCE UNSPECIFIED [Concomitant]
     Active Substance: AMINO ACIDS, SOURCE UNSPECIFIED
     Dosage: UNK(ROUTE:INTERSTITIAL)
     Dates: start: 20250209, end: 20250214
  230. SODIUM CHLORIDE [Concomitant]
     Active Substance: SODIUM CHLORIDE
     Indication: Prophylaxis
     Dosage: UNK
     Route: 041
     Dates: start: 20250209, end: 20250228
  231. CALCIUM GLUCONATE [Concomitant]
     Active Substance: CALCIUM GLUCONATE
     Dosage: UNK
     Route: 041
     Dates: start: 20250209, end: 20250228
  232. CALCIUM GLUCONATE [Concomitant]
     Active Substance: CALCIUM GLUCONATE
     Dosage: UNK
     Route: 041
     Dates: start: 20250206, end: 20250206
  233. CALCIUM GLUCONATE [Concomitant]
     Active Substance: CALCIUM GLUCONATE
     Dosage: UNK
     Route: 041
     Dates: start: 20250207, end: 20250207
  234. CALCIUM GLUCONATE [Concomitant]
     Active Substance: CALCIUM GLUCONATE
     Dosage: UNK
     Route: 041
     Dates: start: 20250208, end: 20250208
  235. CALCIUM GLUCONATE [Concomitant]
     Active Substance: CALCIUM GLUCONATE
     Dosage: UNK
     Route: 040
     Dates: start: 20250228, end: 20250228
  236. VORICONAZOLE [Concomitant]
     Active Substance: VORICONAZOLE
     Dosage: UNK
     Route: 041
     Dates: start: 20250211, end: 20250211
  237. VORICONAZOLE [Concomitant]
     Active Substance: VORICONAZOLE
     Dosage: UNK
     Route: 041
     Dates: start: 20250212, end: 20250228
  238. VORICONAZOLE [Concomitant]
     Active Substance: VORICONAZOLE
     Dosage: UNK
     Route: 041
     Dates: start: 20250228, end: 20250228
  239. OXYGEN [Concomitant]
     Active Substance: OXYGEN
     Dosage: UNK
     Dates: start: 20250223, end: 20250228
  240. OXYGEN [Concomitant]
     Active Substance: OXYGEN
     Dosage: UNK
     Route: 050
     Dates: start: 20250228, end: 20250301
  241. TIGECYCLINE [Concomitant]
     Active Substance: TIGECYCLINE
     Dosage: UNK
     Route: 041
     Dates: start: 20250225, end: 20250225
  242. TIGECYCLINE [Concomitant]
     Active Substance: TIGECYCLINE
     Dosage: UNK
     Route: 041
     Dates: start: 20250226, end: 20250226
  243. TIGECYCLINE [Concomitant]
     Active Substance: TIGECYCLINE
     Dosage: UNK
     Route: 041
     Dates: start: 20250228, end: 20250228
  244. GLYCERIN [Concomitant]
     Active Substance: GLYCERIN
     Dosage: UNK
     Route: 050
     Dates: start: 20250225, end: 20250225
  245. IMIPENEM AND CILASTATIN [Concomitant]
     Active Substance: CILASTATIN SODIUM\IMIPENEM
     Dosage: UNK
     Route: 041
     Dates: start: 20250228, end: 20250228
  246. IMIPENEM AND CILASTATIN [Concomitant]
     Active Substance: CILASTATIN SODIUM\IMIPENEM
     Dosage: UNK
     Route: 041
     Dates: start: 20250301, end: 20250301
  247. METHYLPREDNISOLONE SODIUM SUCCINATE [Concomitant]
     Active Substance: METHYLPREDNISOLONE SODIUM SUCCINATE
     Dosage: UNK
     Route: 041
     Dates: start: 20250228, end: 20250228
  248. DOPAMINE [Concomitant]
     Active Substance: DOPAMINE HYDROCHLORIDE
     Dosage: UNK
     Route: 040
     Dates: start: 20250309, end: 20250309
  249. OCTREOTIDE [Concomitant]
     Active Substance: OCTREOTIDE
     Dosage: UNK
     Route: 058
     Dates: start: 20250305, end: 20250310
  250. ALBUMIN HUMAN [Concomitant]
     Active Substance: ALBUMIN HUMAN
     Dosage: UNK
     Route: 041
     Dates: start: 20250228, end: 20250228

REACTIONS (11)
  - White blood cell count decreased [Recovered/Resolved]
  - White blood cell count decreased [Recovered/Resolved]
  - White blood cell count decreased [Recovered/Resolved]
  - White blood cell count decreased [Recovered/Resolved]
  - White blood cell count decreased [Recovered/Resolved]
  - White blood cell count decreased [Recovered/Resolved]
  - White blood cell count decreased [Recovered/Resolved]
  - White blood cell count decreased [Recovered/Resolved]
  - White blood cell count decreased [Recovered/Resolved]
  - White blood cell count decreased [Recovered/Resolved]
  - White blood cell count decreased [Recovered/Resolved]

NARRATIVE: CASE EVENT DATE: 20240824
